FAERS Safety Report 5602570-4 (Version None)
Quarter: 2008Q1

REPORT INFORMATION
  Report Type: 
  Country: None (occurrence: None)
  Receive Date: 20080125
  Receipt Date: 20080114
  Transmission Date: 20080703
  Serious: Yes (Hospitalization)
  Sender: FDA-Public Use
  Company Number: DE-ROCHE-531843

PATIENT
  Age: 44 Year
  Sex: Female

DRUGS (1)
  1. INTERFERON ALFA [Suspect]
     Route: 058
     Dates: start: 19950101, end: 19960101

REACTIONS (3)
  - AUTOIMMUNE THYROIDITIS [None]
  - HYPOTHYROIDISM [None]
  - MENIERE'S DISEASE [None]
